FAERS Safety Report 10084442 (Version 3)
Quarter: 2014Q2

REPORT INFORMATION
  Report Type: Spontaneous
  Country: DE (occurrence: DE)
  Receive Date: 20140417
  Receipt Date: 20140509
  Transmission Date: 20141212
  Serious: Yes (Death, Other)
  Sender: FDA-Public Use
  Company Number: DE-GILEAD-2014-0099791

PATIENT
  Age: 56 Year
  Sex: Male
  Weight: 182 kg

DRUGS (5)
  1. SOVALDI [Suspect]
     Indication: HEPATITIS C
     Dosage: 400 MG, QD
     Route: 048
     Dates: start: 20140325
  2. RIBAVIRIN [Suspect]
     Indication: HEPATITIS C
     Dosage: 1200 MG, QD
     Route: 048
     Dates: start: 20140325
  3. HEPA MERZ [Concomitant]
     Dosage: 1800 MG, QD
     Route: 048
     Dates: start: 20131016
  4. SPIRONOLACTON [Concomitant]
     Dosage: 50 MG, QD
     Route: 048
     Dates: start: 20131016
  5. XIFAXAN [Concomitant]
     Dosage: 550 MG, BID
     Route: 048
     Dates: start: 20131211

REACTIONS (3)
  - Gastrointestinal haemorrhage [Fatal]
  - Ammonia abnormal [Unknown]
  - Blood glucose abnormal [Unknown]
